FAERS Safety Report 20767163 (Version 1)
Quarter: 2022Q2

REPORT INFORMATION
  Report Type: Spontaneous
  Country: CN (occurrence: CN)
  Receive Date: 20220429
  Receipt Date: 20220429
  Transmission Date: 20220721
  Serious: Yes (Other)
  Sender: FDA-Public Use
  Company Number: CN-NOVARTISPH-NVSC2022CN096008

PATIENT
  Age: 12 Year
  Sex: Male

DRUGS (1)
  1. PAZOPANIB [Suspect]
     Active Substance: PAZOPANIB
     Indication: Rhabdomyosarcoma
     Dosage: MONOTHERAPY
     Route: 065
     Dates: start: 20170327

REACTIONS (3)
  - Myelosuppression [Unknown]
  - Asthenia [Unknown]
  - Nausea [Unknown]
